FAERS Safety Report 9857104 (Version 1)
Quarter: 2014Q1

REPORT INFORMATION
  Report Type: Spontaneous
  Country: US (occurrence: US)
  Receive Date: 20140130
  Receipt Date: 20140130
  Transmission Date: 20141002
  Serious: No
  Sender: FDA-Public Use
  Company Number: US-009507513-1401USA013816

PATIENT
  Sex: Female

DRUGS (2)
  1. CLARITIN REDITABS [Suspect]
     Indication: SNEEZING
     Dosage: UNK, UNKNOWN
     Route: 048
     Dates: start: 201401
  2. CLARITIN REDITABS [Suspect]
     Indication: RHINORRHOEA

REACTIONS (1)
  - Drug effect decreased [Unknown]
